FAERS Safety Report 5236531-4 (Version None)
Quarter: 2007Q1

REPORT INFORMATION
  Report Type: 
  Country: None (occurrence: None)
  Receive Date: 20070206
  Receipt Date: 20070129
  Transmission Date: 20070707
  Serious: No
  Sender: FDA-Public Use
  Company Number: 2006-150231-NL

PATIENT
  Age: 33 Year
  Sex: Female

DRUGS (1)
  1. ETONOGESTREL (BATH #: 817735/844123) [Suspect]
     Indication: CONTRACEPTION
     Dosage: DF
     Dates: start: 20061025

REACTIONS (5)
  - ASTHMA [None]
  - ECZEMA [None]
  - IMPLANT SITE INFLAMMATION [None]
  - PYREXIA [None]
  - TYPE IV HYPERSENSITIVITY REACTION [None]
